FAERS Safety Report 18376755 (Version 1)
Quarter: 2020Q4

REPORT INFORMATION
  Report Type: Report from Study
  Country: IT (occurrence: IT)
  Receive Date: 20201013
  Receipt Date: 20201013
  Transmission Date: 20210114
  Serious: Yes (Hospitalization)
  Sender: FDA-Public Use
  Company Number: IT-TEVA-2020-IT-1836963

PATIENT
  Age: 84 Year
  Sex: Male

DRUGS (11)
  1. CLOPIDOGREL [Suspect]
     Active Substance: CLOPIDOGREL BISULFATE
     Indication: PRODUCT USED FOR UNKNOWN INDICATION
     Dosage: 75 MG
     Dates: start: 20200101, end: 20200616
  2. METOPROLOL. [Concomitant]
     Active Substance: METOPROLOL
  3. CARDURA [Concomitant]
     Active Substance: DOXAZOSIN MESYLATE
  4. GANFORT [Concomitant]
     Active Substance: BIMATOPROST\TIMOLOL
  5. TOUJEO [Concomitant]
     Active Substance: INSULIN GLARGINE
  6. INSULIN LISPRO [Concomitant]
     Active Substance: INSULIN LISPRO
  7. NORVASC [Concomitant]
     Active Substance: AMLODIPINE BESYLATE
  8. TORVAST [Concomitant]
     Active Substance: ATORVASTATIN
  9. CARDIOASPIRIN [Suspect]
     Active Substance: ASPIRIN
     Indication: PRODUCT USED FOR UNKNOWN INDICATION
     Dosage: 100 MG
     Dates: start: 20200101, end: 20200616
  10. ESOMEPRAZOLE. [Concomitant]
     Active Substance: ESOMEPRAZOLE MAGNESIUM
  11. LASIX [Concomitant]
     Active Substance: FUROSEMIDE

REACTIONS (1)
  - Anaemia [Not Recovered/Not Resolved]

NARRATIVE: CASE EVENT DATE: 20200616
